FAERS Safety Report 19332107 (Version 10)
Quarter: 2021Q4

REPORT INFORMATION
  Report Type: Report from Study
  Country: CA (occurrence: CA)
  Receive Date: 20210529
  Receipt Date: 20211224
  Transmission Date: 20220303
  Serious: Yes (Other)
  Sender: FDA-Public Use
  Company Number: CA-TAKEDA-2021TUS030048

PATIENT
  Age: 81 Year
  Sex: Female

DRUGS (12)
  1. VEDOLIZUMAB [Suspect]
     Active Substance: VEDOLIZUMAB
     Indication: Crohn^s disease
     Dosage: 300 MILLIGRAM
     Route: 042
     Dates: start: 20210414
  2. VEDOLIZUMAB [Suspect]
     Active Substance: VEDOLIZUMAB
     Dosage: 300 MILLIGRAM
     Route: 042
     Dates: end: 20210602
  3. VEDOLIZUMAB [Suspect]
     Active Substance: VEDOLIZUMAB
     Dosage: 300 MILLIGRAM
     Route: 042
     Dates: start: 20211004
  4. VEDOLIZUMAB [Suspect]
     Active Substance: VEDOLIZUMAB
     Dosage: 300 MILLIGRAM, Q4WEEKS
     Route: 042
     Dates: start: 20211220
  5. PANTOPRAZOLE [Suspect]
     Active Substance: PANTOPRAZOLE
     Indication: Product used for unknown indication
     Dosage: 40 MILLIGRAM, QD
     Route: 065
  6. PREDNISONE [Concomitant]
     Active Substance: PREDNISONE
     Dosage: UNK UNK, QD
  7. CALCIUM [Concomitant]
     Active Substance: CALCIUM
     Dosage: 1 GRAM, QD
  8. VITAMIN D NOS [Concomitant]
     Active Substance: VITAMIN D NOS
     Dosage: UNK
  9. THYROXINE [Concomitant]
     Active Substance: LEVOTHYROXINE
     Dosage: UNK
  10. ESCITALOPRAM [Concomitant]
     Active Substance: ESCITALOPRAM OXALATE
     Dosage: UNK
  11. AMLODIPINE [Concomitant]
     Active Substance: AMLODIPINE BESYLATE
     Dosage: 5 MILLIGRAM, QD
  12. SPIRONOLACTONE [Concomitant]
     Active Substance: SPIRONOLACTONE
     Dosage: 25 MILLIGRAM, QD

REACTIONS (18)
  - Crohn^s disease [Unknown]
  - Stevens-Johnson syndrome [Unknown]
  - Toxic epidermal necrolysis [Unknown]
  - Haematochezia [Unknown]
  - Frequent bowel movements [Unknown]
  - Adverse drug reaction [Not Recovered/Not Resolved]
  - Mucous stools [Unknown]
  - Vomiting [Unknown]
  - Somnolence [Unknown]
  - Diarrhoea [Unknown]
  - Sneezing [Unknown]
  - Drug hypersensitivity [Recovered/Resolved]
  - Erythema [Unknown]
  - Malaise [Unknown]
  - Muscle spasms [Not Recovered/Not Resolved]
  - Fatigue [Unknown]
  - Oropharyngeal pain [Unknown]
  - Off label use [Unknown]

NARRATIVE: CASE EVENT DATE: 20211004
